FAERS Safety Report 11241886 (Version 3)
Quarter: 2015Q3

REPORT INFORMATION
  Report Type: Spontaneous
  Country: DE (occurrence: DE)
  Receive Date: 20150706
  Receipt Date: 20150908
  Transmission Date: 20151125
  Serious: Yes (Hospitalization)
  Sender: FDA-Public Use
  Company Number: DE-BRACCO-001970

PATIENT
  Age: 78 Year
  Sex: Female

DRUGS (6)
  1. IBUPROFEN. [Concomitant]
     Active Substance: IBUPROFEN
  2. VALSARTAN. [Concomitant]
     Active Substance: VALSARTAN
  3. DULOXETINE. [Concomitant]
     Active Substance: DULOXETINE
     Dosage: 1 X 2 TABLETS
  4. SOLUTRAST [Suspect]
     Active Substance: IOPAMIDOL
     Indication: SPINAL MYELOGRAM
     Route: 037
     Dates: start: 20150624, end: 20150624
  5. PANTOPRAZOLE [Concomitant]
     Active Substance: PANTOPRAZOLE SODIUM
  6. PREDNISOLONE. [Concomitant]
     Active Substance: PREDNISOLONE

REACTIONS (2)
  - Meningitis [Recovering/Resolving]
  - Product contamination microbial [Recovering/Resolving]

NARRATIVE: CASE EVENT DATE: 201506
